FAERS Safety Report 4696732-0 (Version None)
Quarter: 2005Q2

REPORT INFORMATION
  Report Type: 
  Country: None (occurrence: None)
  Receive Date: 20050620
  Receipt Date: 20050610
  Transmission Date: 20051028
  Serious: Yes (Other)
  Sender: FDA-Public Use
  Company Number: USA-2005-0020569

PATIENT
  Age: 33 Year
  Sex: Male

DRUGS (1)
  1. OXYCONTIN [Suspect]
     Indication: PAIN
     Dosage: 40 MG Q12H
     Dates: start: 20030201, end: 20030101

REACTIONS (11)
  - ABDOMINAL PAIN [None]
  - AGITATION [None]
  - AMNESIA [None]
  - DEPRESSION [None]
  - DIARRHOEA [None]
  - DRUG DEPENDENCE [None]
  - DRUG WITHDRAWAL SYNDROME [None]
  - LACRIMATION INCREASED [None]
  - RHINORRHOEA [None]
  - SOMNOLENCE [None]
  - SUICIDAL IDEATION [None]
